FAERS Safety Report 16845173 (Version 1)
Quarter: 2019Q3

REPORT INFORMATION
  Report Type: Spontaneous
  Country: US (occurrence: US)
  Receive Date: 20190924
  Receipt Date: 20190924
  Transmission Date: 20191005
  Serious: No
  Sender: FDA-Public Use
  Company Number: US-PFIZER INC-2019410733

PATIENT
  Age: 46 Year

DRUGS (4)
  1. SILVER SULFADIAZENE [Suspect]
     Active Substance: SILVER SULFADIAZINE
     Dosage: UNK
  2. CELECOXIB. [Suspect]
     Active Substance: CELECOXIB
     Dosage: UNK
  3. RITUXAN [Suspect]
     Active Substance: RITUXIMAB
     Dosage: UNK
  4. LEFLUNOMIDE. [Suspect]
     Active Substance: LEFLUNOMIDE
     Dosage: UNK

REACTIONS (1)
  - Drug hypersensitivity [Unknown]
